FAERS Safety Report 7599328-6 (Version None)
Quarter: 2011Q3

REPORT INFORMATION
  Report Type: 
  Country: None (occurrence: None)
  Receive Date: 20110711
  Receipt Date: 20110606
  Transmission Date: 20111222
  Serious: No
  Sender: FDA-Public Use
  Company Number: US-BAYER-2011-049268

PATIENT
  Age: 79 Year
  Sex: Female
  Weight: 68 kg

DRUGS (1)
  1. NAPROXEN SODIUM [Suspect]
     Indication: PAIN
     Dosage: 880 MG, QD
     Route: 048
     Dates: start: 20110523

REACTIONS (1)
  - NO ADVERSE EVENT [None]
